FAERS Safety Report 6417210-4 (Version None)
Quarter: 2009Q4

REPORT INFORMATION
  Report Type: 
  Country: None (occurrence: None)
  Receive Date: 20091028
  Receipt Date: 20091020
  Transmission Date: 20100525
  Serious: Yes (Other)
  Sender: FDA-Public Use
  Company Number: JP-JNJFOC-20090806515

PATIENT
  Sex: Female
  Weight: 64 kg

DRUGS (10)
  1. RISPERDAL CONSTA [Suspect]
     Route: 030
  2. RISPERDAL CONSTA [Suspect]
     Route: 030
  3. RISPERDAL CONSTA [Suspect]
     Indication: SCHIZOPHRENIA
     Route: 030
  4. RISPERIDONE [Suspect]
     Indication: SCHIZOPHRENIA
     Route: 048
  5. RISPERDAL [Concomitant]
     Route: 048
  6. RISPERDAL [Concomitant]
     Route: 048
  7. SYMMETREL [Concomitant]
     Indication: THIRST
     Route: 048
  8. BYAKKO-KA-NINJIN-TO [Concomitant]
     Indication: THIRST
     Route: 048
  9. DEPAS [Concomitant]
     Indication: THIRST
     Route: 065
  10. AKINETON [Concomitant]
     Indication: THIRST
     Route: 065

REACTIONS (14)
  - AKATHISIA [None]
  - ANXIETY [None]
  - CATARACT [None]
  - DECREASED APPETITE [None]
  - EXTRAPYRAMIDAL DISORDER [None]
  - EYE PAIN [None]
  - EYE SWELLING [None]
  - GLAUCOMA [None]
  - INSOMNIA [None]
  - NAUSEA [None]
  - OCULAR HYPERAEMIA [None]
  - RESTLESSNESS [None]
  - VISION BLURRED [None]
  - WEIGHT DECREASED [None]
